FAERS Safety Report 9782188 (Version 3)
Quarter: 2014Q1

REPORT INFORMATION
  Report Type: Spontaneous
  Country: PL (occurrence: PL)
  Receive Date: 20131226
  Receipt Date: 20140224
  Transmission Date: 20141002
  Serious: Yes (Other)
  Sender: FDA-Public Use
  Company Number: PL-RANBAXY-2013RR-76384

PATIENT
  Age: 54 Year
  Sex: Female
  Weight: 90 kg

DRUGS (5)
  1. KLABAX 500 MG TABLET [Suspect]
     Indication: UPPER RESPIRATORY TRACT INFECTION
     Dosage: 500 MG, BID
     Route: 048
     Dates: start: 20131120
  2. DELMUNO 5 [Concomitant]
     Indication: PRODUCT USED FOR UNKNOWN INDICATION
     Dosage: FOR MORE THAN 2 YEARS
     Route: 065
  3. BISOCARD [Concomitant]
     Indication: PRODUCT USED FOR UNKNOWN INDICATION
     Dosage: 5 MG, UNK
     Route: 065
  4. TRITACE [Concomitant]
     Indication: PRODUCT USED FOR UNKNOWN INDICATION
     Route: 065
  5. SETAL MR [Concomitant]
     Indication: PRODUCT USED FOR UNKNOWN INDICATION
     Dosage: FOR MORE THAN 2 YEARS
     Route: 065

REACTIONS (1)
  - Epistaxis [Recovered/Resolved]
